FAERS Safety Report 15577953 (Version 6)
Quarter: 2019Q4

REPORT INFORMATION
  Report Type: Report from Study
  Country: CA (occurrence: CA)
  Receive Date: 20181102
  Receipt Date: 20191007
  Transmission Date: 20200122
  Serious: Yes (Other)
  Sender: FDA-Public Use
  Company Number: CA-ROCHE-2174788

PATIENT
  Age: 56 Year
  Sex: Male

DRUGS (4)
  1. ACETAMINOPHEN. [Concomitant]
     Active Substance: ACETAMINOPHEN
     Route: 048
  2. METHYLPREDNISOLONE. [Concomitant]
     Active Substance: METHYLPREDNISOLONE
     Route: 042
  3. OCREVUS [Suspect]
     Active Substance: OCRELIZUMAB
     Indication: SECONDARY PROGRESSIVE MULTIPLE SCLEROSIS
     Dosage: LIQUID 600 MG EVERY 6 MONTHS?300 MG AT DAY 0 AND 14, THEN 600 MG EVERY 6 MONTH ;
     Route: 042
     Dates: start: 20180816
  4. BENADRYL [Concomitant]
     Active Substance: DIPHENHYDRAMINE HYDROCHLORIDE
     Route: 048

REACTIONS (8)
  - Intentional product use issue [Unknown]
  - Multiple sclerosis [Not Recovered/Not Resolved]
  - Pruritus [Unknown]
  - Oral herpes [Not Recovered/Not Resolved]
  - Drug ineffective [Unknown]
  - Fatigue [Unknown]
  - Infusion related reaction [Unknown]
  - Off label use [Unknown]

NARRATIVE: CASE EVENT DATE: 20180817
